FAERS Safety Report 8186886-6 (Version None)
Quarter: 2012Q1

REPORT INFORMATION
  Report Type: 
  Country: None (occurrence: None)
  Receive Date: 20120301
  Receipt Date: 20110929
  Transmission Date: 20120608
  Serious: Yes (Hospitalization)
  Sender: FDA-Public Use
  Company Number: WAES 1109USA00472

PATIENT
  Age: 48 Year
  Sex: Male

DRUGS (11)
  1. ZOLINZA [Suspect]
     Indication: GASTRIC CANCER
     Dosage: 400 MG/DAILY PO, 400 MG/DAILY PO, 300 MG/DAILY PO
     Route: 048
     Dates: start: 20110729, end: 20110811
  2. ZOLINZA [Suspect]
     Indication: GASTRIC CANCER
     Dosage: 400 MG/DAILY PO, 400 MG/DAILY PO, 300 MG/DAILY PO
     Route: 048
     Dates: start: 20110917
  3. ZOLINZA [Suspect]
     Indication: GASTRIC CANCER
     Dosage: 400 MG/DAILY PO, 400 MG/DAILY PO, 300 MG/DAILY PO
     Route: 048
     Dates: start: 20110820, end: 20110902
  4. SODIUM BICARBONATE [Concomitant]
  5. ULCERMIN [Concomitant]
  6. CISPLATIN [Suspect]
     Indication: GASTRIC CANCER
     Dosage: 98.4 MG/DAILY IV, 98.4 MG/DAILY IV, 94.8 MG/DAILY IV
     Route: 042
     Dates: start: 20110820, end: 20110820
  7. CISPLATIN [Suspect]
     Indication: GASTRIC CANCER
     Dosage: 98.4 MG/DAILY IV, 98.4 MG/DAILY IV, 94.8 MG/DAILY IV
     Route: 042
     Dates: start: 20110917
  8. CISPLATIN [Suspect]
     Indication: GASTRIC CANCER
     Dosage: 98.4 MG/DAILY IV, 98.4 MG/DAILY IV, 94.8 MG/DAILY IV
     Route: 042
     Dates: start: 20110729, end: 20110729
  9. XELODA [Suspect]
     Indication: GASTRIC CANCER
     Dosage: 1600 MG/BID PO, 1600 MG/BID PO, 1200 MG/BID PO
     Route: 048
     Dates: start: 20110917
  10. XELODA [Suspect]
     Indication: GASTRIC CANCER
     Dosage: 1600 MG/BID PO, 1600 MG/BID PO, 1200 MG/BID PO
     Route: 048
     Dates: start: 20110820, end: 20110902
  11. XELODA [Suspect]
     Indication: GASTRIC CANCER
     Dosage: 1600 MG/BID PO, 1600 MG/BID PO, 1200 MG/BID PO
     Route: 048
     Dates: start: 20110729, end: 20110811

REACTIONS (6)
  - HYPOCALCAEMIA [None]
  - DECREASED APPETITE [None]
  - TINEA PEDIS [None]
  - ENTERITIS [None]
  - HYPOALBUMINAEMIA [None]
  - FATIGUE [None]
